FAERS Safety Report 19193160 (Version 5)
Quarter: 2021Q4

REPORT INFORMATION
  Report Type: Report from Study
  Country: None (occurrence: JP)
  Receive Date: 20210429
  Receipt Date: 20211007
  Transmission Date: 20220303
  Serious: Yes (Death, Hospitalization, Other)
  Sender: FDA-Public Use
  Company Number: JP-ABBVIE-20K-087-3708752-00

PATIENT
  Age: 70 Year
  Sex: Female
  Weight: 47.2 kg

DRUGS (14)
  1. VENCLEXTA [Suspect]
     Active Substance: VENETOCLAX
     Indication: Chronic lymphocytic leukaemia
     Route: 048
     Dates: start: 20200304, end: 202003
  2. VENCLEXTA [Suspect]
     Active Substance: VENETOCLAX
     Route: 048
     Dates: start: 20200311, end: 202003
  3. VENCLEXTA [Suspect]
     Active Substance: VENETOCLAX
     Route: 048
     Dates: start: 20200318, end: 202003
  4. VENCLEXTA [Suspect]
     Active Substance: VENETOCLAX
     Route: 048
     Dates: start: 20200325, end: 202003
  5. VENCLEXTA [Suspect]
     Active Substance: VENETOCLAX
     Route: 048
     Dates: start: 20200401, end: 20201223
  6. FEBUXOSTAT [Suspect]
     Active Substance: FEBUXOSTAT
     Indication: Prophylaxis
     Route: 048
     Dates: start: 20200302, end: 20200616
  7. ATOVAQUONE [Concomitant]
     Active Substance: ATOVAQUONE
     Indication: Infection prophylaxis
     Route: 048
     Dates: start: 20160705
  8. RITUXIMAB [Concomitant]
     Active Substance: RITUXIMAB
     Indication: Chronic lymphocytic leukaemia
     Dates: end: 20190925
  9. RITUXIMAB [Concomitant]
     Active Substance: RITUXIMAB
     Dates: start: 20200408, end: 202004
  10. RITUXIMAB [Concomitant]
     Active Substance: RITUXIMAB
     Dates: start: 20200508, end: 202005
  11. RITUXIMAB [Concomitant]
     Active Substance: RITUXIMAB
     Dates: start: 20200604, end: 202006
  12. RITUXIMAB [Concomitant]
     Active Substance: RITUXIMAB
     Dates: start: 20200702, end: 202007
  13. RITUXIMAB [Concomitant]
     Active Substance: RITUXIMAB
     Dates: start: 20200730, end: 2020
  14. RITUXIMAB [Concomitant]
     Active Substance: RITUXIMAB
     Dates: start: 20200827

REACTIONS (7)
  - Chronic lymphocytic leukaemia [Fatal]
  - Anaemia [Recovering/Resolving]
  - Lymphocyte count decreased [Recovering/Resolving]
  - Hyperbilirubinaemia [Recovered/Resolved]
  - Blood alkaline phosphatase increased [Not Recovered/Not Resolved]
  - C-reactive protein increased [Not Recovered/Not Resolved]
  - Platelet count increased [Recovered/Resolved]

NARRATIVE: CASE EVENT DATE: 20200304
